FAERS Safety Report 6480761-0 (Version None)
Quarter: 2009Q4

REPORT INFORMATION
  Report Type: 
  Country: None (occurrence: None)
  Receive Date: 20091208
  Receipt Date: 20091126
  Transmission Date: 20100525
  Serious: Yes (Other)
  Sender: FDA-Public Use
  Company Number: ES-JNJFOC-20091201357

PATIENT
  Age: 66 Year
  Sex: Male

DRUGS (1)
  1. REMICADE [Suspect]
     Indication: ANKYLOSING SPONDYLITIS
     Dosage: DOSE AMOUNT NOT REPORTED
     Route: 042
     Dates: start: 20010116, end: 20030522

REACTIONS (2)
  - AMYLOIDOSIS [None]
  - RENAL FAILURE CHRONIC [None]
